FAERS Safety Report 23577485 (Version 1)
Quarter: 2024Q1

REPORT INFORMATION
  Report Type: Spontaneous
  Country: FR (occurrence: FR)
  Receive Date: 20240228
  Receipt Date: 20240228
  Transmission Date: 20240409
  Serious: Yes (Hospitalization, Other)
  Sender: FDA-Public Use
  Company Number: None

PATIENT
  Age: 65 Year
  Sex: Male
  Weight: 64 kg

DRUGS (2)
  1. KEYTRUDA [Suspect]
     Active Substance: PEMBROLIZUMAB
     Indication: Clear cell renal cell carcinoma
     Dosage: 200 MILLIGRAM, Q3W
     Route: 042
     Dates: start: 20230822
  2. INLYTA [Suspect]
     Active Substance: AXITINIB
     Indication: Clear cell renal cell carcinoma
     Dosage: 1 DOSAGE FORM, QD
     Route: 048
     Dates: start: 20230912

REACTIONS (2)
  - Nephritis [Recovering/Resolving]
  - Mixed liver injury [Recovering/Resolving]

NARRATIVE: CASE EVENT DATE: 20231101
